FAERS Safety Report 4679408-5 (Version None)
Quarter: 2005Q2

REPORT INFORMATION
  Report Type: 
  Country: None (occurrence: None)
  Receive Date: 20050531
  Receipt Date: 20050517
  Transmission Date: 20051028
  Serious: Yes (Other)
  Sender: FDA-Public Use
  Company Number: B0359542A

PATIENT
  Sex: Male

DRUGS (2)
  1. PAXIL [Suspect]
     Indication: DEPRESSION
     Dates: start: 20010601, end: 20020901
  2. OLANZAPINE [Concomitant]

REACTIONS (14)
  - AGGRESSION [None]
  - ANGER [None]
  - DEPRESSION [None]
  - FEELING DRUNK [None]
  - HALLUCINATION, AUDITORY [None]
  - IMPRISONMENT [None]
  - INTENTIONAL SELF-INJURY [None]
  - IRRITABILITY [None]
  - LACERATION [None]
  - LEGAL PROBLEM [None]
  - OVERDOSE [None]
  - PSYCHOTIC DISORDER [None]
  - SLEEP DISORDER [None]
  - SUICIDAL IDEATION [None]
